FAERS Safety Report 8248505-X (Version None)
Quarter: 2012Q1

REPORT INFORMATION
  Report Type: 
  Country: None (occurrence: None)
  Receive Date: 20120330
  Receipt Date: 20120328
  Transmission Date: 20120608
  Serious: Yes (Hospitalization)
  Sender: FDA-Public Use
  Company Number: US-MERCK-1112USA02422

PATIENT
  Age: 87 Year
  Sex: Female

DRUGS (1)
  1. FOSAMAX [Suspect]
     Indication: OSTEOPOROSIS
     Route: 048
     Dates: start: 20060101, end: 20090101

REACTIONS (10)
  - ANKLE FRACTURE [None]
  - OVERDOSE [None]
  - FEMUR FRACTURE [None]
  - OEDEMA PERIPHERAL [None]
  - CARDIAC FAILURE CONGESTIVE [None]
  - ANAEMIA [None]
  - FALL [None]
  - DYSPNOEA [None]
  - BACK PAIN [None]
  - GASTROOESOPHAGEAL REFLUX DISEASE [None]
